FAERS Safety Report 9062288 (Version 1)
Quarter: 2013Q1

REPORT INFORMATION
  Report Type: Spontaneous
  Country: US (occurrence: US)
  Receive Date: 20130129
  Receipt Date: 20130129
  Transmission Date: 20140127
  Serious: Yes (Death)
  Sender: FDA-Public Use
  Company Number: US-ELI_LILLY_AND_COMPANY-US201301005551

PATIENT
  Age: 71 Year
  Sex: Male

DRUGS (2)
  1. FORTEO [Suspect]
     Indication: OSTEOPOROSIS
     Dosage: 20 UG, QD
     Dates: start: 201110
  2. TESTOSTERONE [Concomitant]
     Indication: HYPOGONADISM

REACTIONS (4)
  - Arrhythmia [Fatal]
  - Ischaemic cardiomyopathy [Fatal]
  - Malnutrition [Fatal]
  - Pain [Unknown]
